FAERS Safety Report 14409334 (Version 2)
Quarter: 2018Q1

REPORT INFORMATION
  Report Type: Spontaneous
  Country: US (occurrence: US)
  Receive Date: 20180119
  Receipt Date: 20180122
  Transmission Date: 20180509
  Serious: No
  Sender: FDA-Public Use
  Company Number: US-LUNDBECK-DKLU2038011

PATIENT
  Sex: Female

DRUGS (2)
  1. NORTHERA [Suspect]
     Active Substance: DROXIDOPA
     Indication: HYPOTENSION
     Route: 065
     Dates: start: 201709
  2. LORTAB [Concomitant]
     Active Substance: ACETAMINOPHEN\HYDROCODONE BITARTRATE
     Indication: PRODUCT USED FOR UNKNOWN INDICATION
     Route: 065

REACTIONS (8)
  - Myalgia [Unknown]
  - Condition aggravated [Unknown]
  - Arthralgia [Unknown]
  - Pyrexia [Unknown]
  - Nausea [Unknown]
  - Renal pain [Unknown]
  - Lethargy [Unknown]
  - Hypotension [Unknown]
